FAERS Safety Report 15358684 (Version 2)
Quarter: 2018Q4

REPORT INFORMATION
  Report Type: Spontaneous
  Country: US (occurrence: US)
  Receive Date: 20180906
  Receipt Date: 20181206
  Transmission Date: 20190204
  Serious: No
  Sender: FDA-Public Use
  Company Number: US-NOVOPROD-612494

PATIENT
  Age: 73 Year
  Sex: Male

DRUGS (6)
  1. NOVOLOG [Concomitant]
     Active Substance: INSULIN ASPART
     Dosage: 54 U, QD IN THE EVENING
     Route: 058
  2. NOVOLOG [Concomitant]
     Active Substance: INSULIN ASPART
     Dosage: 25 U, QD IN THE AFTERNOON
     Route: 058
  3. NOVOLOG [Concomitant]
     Active Substance: INSULIN ASPART
     Dosage: 50 U, QD IN THE MORNING
     Route: 058
  4. XULTOPHY 100/3.6 [Suspect]
     Active Substance: INSULIN DEGLUDEC\LIRAGLUTIDE
     Indication: TYPE 2 DIABETES MELLITUS
     Dosage: 48 U, QD
     Route: 058
     Dates: start: 201806, end: 2018
  5. NOVOLOG [Concomitant]
     Active Substance: INSULIN ASPART
     Indication: TYPE 2 DIABETES MELLITUS
     Dosage: UNK
     Route: 058
  6. XULTOPHY 100/3.6 [Suspect]
     Active Substance: INSULIN DEGLUDEC\LIRAGLUTIDE
     Dosage: 50 U, QD
     Route: 058
     Dates: start: 2018

REACTIONS (2)
  - Drug ineffective [Not Recovered/Not Resolved]
  - Blood glucose increased [Not Recovered/Not Resolved]

NARRATIVE: CASE EVENT DATE: 201806
